FAERS Safety Report 5272103-3 (Version None)
Quarter: 2007Q1

REPORT INFORMATION
  Report Type: 
  Country: None (occurrence: None)
  Receive Date: 20070320
  Receipt Date: 20070320
  Transmission Date: 20070707
  Serious: Yes (Other)
  Sender: FDA-Public Use
  Company Number: None

PATIENT
  Age: 68 Year
  Sex: Female
  Weight: 57.1532 kg

DRUGS (1)
  1. CYMBALTA [Suspect]
     Indication: NEUROPATHY PERIPHERAL
     Dosage: 90 MG DAILY PO
     Route: 048
     Dates: start: 20070201, end: 20070315

REACTIONS (8)
  - AFFECTIVE DISORDER [None]
  - CONDITION AGGRAVATED [None]
  - DYSPEPSIA [None]
  - FLUSHING [None]
  - HYPERHIDROSIS [None]
  - PALPITATIONS [None]
  - PERIPHERAL COLDNESS [None]
  - SLEEP DISORDER [None]
